FAERS Safety Report 14236819 (Version 3)
Quarter: 2018Q1

REPORT INFORMATION
  Report Type: Spontaneous
  Country: CA (occurrence: CA)
  Receive Date: 20171129
  Receipt Date: 20180313
  Transmission Date: 20180508
  Serious: Yes (Hospitalization, Other)
  Sender: FDA-Public Use
  Company Number: CA-ROCHE-2032346

PATIENT
  Sex: Female

DRUGS (3)
  1. XOLAIR [Suspect]
     Active Substance: OMALIZUMAB
     Route: 058
     Dates: start: 20180123
  2. XOLAIR [Suspect]
     Active Substance: OMALIZUMAB
     Indication: ASTHMA
     Route: 058
     Dates: start: 20130417
  3. XOLAIR [Suspect]
     Active Substance: OMALIZUMAB
     Route: 058
     Dates: start: 20171010

REACTIONS (17)
  - Perfume sensitivity [Unknown]
  - Small intestinal obstruction [Unknown]
  - Obstructive airways disorder [Unknown]
  - Allergic sinusitis [Unknown]
  - Asthma [Unknown]
  - Eye pruritus [Unknown]
  - Throat irritation [Unknown]
  - Chest discomfort [Unknown]
  - Blood immunoglobulin E increased [Unknown]
  - Smoke sensitivity [Unknown]
  - Rhinorrhoea [Unknown]
  - Hypersensitivity [Unknown]
  - Dyspnoea [Unknown]
  - Eczema [Unknown]
  - Cough [Unknown]
  - Colitis ulcerative [Unknown]
  - Sensitivity to weather change [Unknown]

NARRATIVE: CASE EVENT DATE: 2017
